FAERS Safety Report 7478482-0 (Version None)
Quarter: 2011Q2

REPORT INFORMATION
  Report Type: 
  Country: None (occurrence: None)
  Receive Date: 20110513
  Receipt Date: 20100625
  Transmission Date: 20111010
  Serious: Yes (Other)
  Sender: FDA-Public Use
  Company Number: US-PFIZER INC-2010080509

PATIENT
  Age: 77 Year
  Sex: Female
  Weight: 78.005 kg

DRUGS (6)
  1. ACETAMINOPHEN [Concomitant]
     Indication: PAIN
     Dosage: UNK
  2. ADVIL LIQUI-GELS [Concomitant]
     Dosage: UNK, AS NEEDED
  3. ASPERCREME [Concomitant]
     Dosage: UNK
  4. ICY HOT EXTRA STRENGTH PAIN RELIEVING BALM [Concomitant]
     Dosage: UNK, AS NEEDED
  5. CELEBREX [Suspect]
     Indication: ARTHRITIS
     Dosage: UNK
     Route: 048
  6. NAPROXEN (ALEVE) [Concomitant]
     Dosage: UNK

REACTIONS (1)
  - LIVER DISORDER [None]
